FAERS Safety Report 8577508-0 (Version None)
Quarter: 2012Q3

REPORT INFORMATION
  Report Type: 
  Country: None (occurrence: None)
  Receive Date: 20120807
  Receipt Date: 20120725
  Transmission Date: 20120928
  Serious: Yes (Hospitalization)
  Sender: FDA-Public Use
  Company Number: JP-ROCHE-1079212

PATIENT
  Sex: Male
  Weight: 46 kg

DRUGS (2)
  1. ACTEMRA [Suspect]
     Indication: RHEUMATOID ARTHRITIS
     Route: 041
     Dates: start: 20110607, end: 20120523
  2. AZULFIDINE [Concomitant]
     Indication: RHEUMATOID ARTHRITIS
     Route: 048
     Dates: start: 20090521

REACTIONS (5)
  - DIZZINESS [None]
  - NAUSEA [None]
  - VOMITING [None]
  - DIPLOPIA [None]
  - NYSTAGMUS [None]
